FAERS Safety Report 4641439-9 (Version None)
Quarter: 2005Q2

REPORT INFORMATION
  Report Type: 
  Country: None (occurrence: None)
  Receive Date: 20050420
  Receipt Date: 20050420
  Transmission Date: 20051028
  Serious: Yes (Other)
  Sender: FDA-Public Use
  Company Number: None

PATIENT
  Sex: Male
  Weight: 76.2043 kg

DRUGS (11)
  1. FLOMAX [Suspect]
     Indication: BENIGN PROSTATIC HYPERPLASIA
     Dosage: 0.4MG  QOD  ORAL
     Route: 048
     Dates: start: 20000101, end: 20050418
  2. LIPITOR [Concomitant]
  3. ALPHAGAN P [Concomitant]
  4. ACCUPRIL [Concomitant]
  5. ZANTAC [Concomitant]
  6. ASPIRIN [Concomitant]
  7. METAMUCIL-2 [Concomitant]
  8. NASALCROM [Concomitant]
  9. CLARITIN [Concomitant]
  10. GLUCOSAMINE CHONDROITIN [Concomitant]
  11. MULTI-VITAMIN [Concomitant]

REACTIONS (5)
  - DRUG EFFECT DECREASED [None]
  - IRIDOCELE [None]
  - IRIS DISORDER [None]
  - PROCEDURAL COMPLICATION [None]
  - THERAPEUTIC RESPONSE DECREASED [None]
